FAERS Safety Report 10674653 (Version 3)
Quarter: 2015Q1

REPORT INFORMATION
  Report Type: Spontaneous
  Country: US (occurrence: US)
  Receive Date: 20141224
  Receipt Date: 20150212
  Transmission Date: 20150720
  Serious: Yes (Other)
  Sender: FDA-Public Use
  Company Number: CHPA2014US016796

PATIENT
  Age: 63 Year
  Sex: Female

DRUGS (4)
  1. VOLTAREN [Suspect]
     Active Substance: DICLOFENAC SODIUM
     Indication: WRONG TECHNIQUE IN DRUG USAGE PROCESS
  2. VOLTAREN [Suspect]
     Active Substance: DICLOFENAC SODIUM
     Indication: LIMB INJURY
  3. VOLTAREN XR [Suspect]
     Active Substance: DICLOFENAC SODIUM
     Indication: PRODUCT USED FOR UNKNOWN INDICATION
     Dosage: UNK
     Route: 065
     Dates: start: 2013
  4. VOLTAREN [Suspect]
     Active Substance: DICLOFENAC SODIUM
     Indication: OSTEOARTHRITIS
     Dosage: A LITTLE DOLLOP, UNK
     Route: 061
     Dates: start: 2009

REACTIONS (6)
  - Bone disorder [Unknown]
  - Gastric ulcer [Unknown]
  - Myalgia [Unknown]
  - Drug administered at inappropriate site [Unknown]
  - Foot fracture [Unknown]
  - Product use issue [Unknown]
